FAERS Safety Report 5705780-0 (Version None)
Quarter: 2008Q2

REPORT INFORMATION
  Report Type: 
  Country: None (occurrence: None)
  Receive Date: 20080415
  Receipt Date: 20080403
  Transmission Date: 20081010
  Serious: Yes (Hospitalization, Disabling, Other)
  Sender: FDA-Public Use
  Company Number: GB-ASTRAZENECA-2008GB00257

PATIENT
  Age: 43 Year
  Sex: Female
  Weight: 87 kg

DRUGS (4)
  1. SEROQUEL [Suspect]
     Indication: PSYCHOTIC DISORDER
     Route: 048
     Dates: start: 20071218, end: 20080130
  2. DULOXETINE [Concomitant]
     Indication: DEPRESSION
     Dosage: DOSAGE REPORTED AS 120 MG
     Route: 048
     Dates: start: 20071213, end: 20080130
  3. RISPERIDONE CONSTA [Concomitant]
     Indication: SCHIZOPHRENIA
     Route: 030
     Dates: start: 20060101
  4. RISPERIDONE [Concomitant]
     Indication: PSYCHOTIC DISORDER
     Dosage: DOSAGE REPORTED AS 4 MG
     Route: 048
     Dates: start: 20060101, end: 20080109

REACTIONS (4)
  - ALANINE AMINOTRANSFERASE INCREASED [None]
  - BLOOD ALKALINE PHOSPHATASE INCREASED [None]
  - CONFUSIONAL STATE [None]
  - GAMMA-GLUTAMYLTRANSFERASE [None]
